FAERS Safety Report 9696695 (Version 1)
Quarter: 2013Q4

REPORT INFORMATION
  Report Type: Spontaneous
  Country: US (occurrence: US)
  Receive Date: 20131119
  Receipt Date: 20131119
  Transmission Date: 20140711
  Serious: No
  Sender: FDA-Public Use
  Company Number: US-GILEAD-2007-0014096

PATIENT
  Sex: Female

DRUGS (1)
  1. LETAIRIS [Suspect]
     Indication: PULMONARY ARTERIAL HYPERTENSION
     Route: 048
     Dates: start: 20071002, end: 20071019

REACTIONS (5)
  - Fatigue [Unknown]
  - Dizziness [Unknown]
  - Muscle disorder [Unknown]
  - Asthenia [Unknown]
  - Dyspnoea [Unknown]
